FAERS Safety Report 9817235 (Version 2)
Quarter: 2014Q1

REPORT INFORMATION
  Report Type: Report from Study
  Country: FR (occurrence: FR)
  Receive Date: 20140114
  Receipt Date: 20140114
  Transmission Date: 20141002
  Serious: Yes (Hospitalization)
  Sender: FDA-Public Use
  Company Number: FR-ROCHE-1267773

PATIENT
  Age: 54 Year
  Sex: Male
  Weight: 76 kg

DRUGS (5)
  1. PEG-INTERFERON ALFA 2A [Suspect]
     Indication: CHRONIC HEPATITIS C
     Route: 058
     Dates: start: 20130206
  2. RIBAVIRIN [Suspect]
     Indication: CHRONIC HEPATITIS C
     Route: 048
     Dates: start: 20130206
  3. TELAPREVIR [Suspect]
     Indication: CHRONIC HEPATITIS C
     Route: 048
     Dates: start: 20130206, end: 20130430
  4. ATARAX (FRANCE) [Concomitant]
     Indication: INSOMNIA
     Route: 048
     Dates: start: 2012
  5. MIANSERINE [Concomitant]
     Indication: ANXIETY
     Route: 048
     Dates: start: 2012

REACTIONS (1)
  - Tuberculosis [Not Recovered/Not Resolved]
